FAERS Safety Report 21519511 (Version 1)
Quarter: 2022Q4

REPORT INFORMATION
  Report Type: Report from Study
  Country: US (occurrence: US)
  Receive Date: 20221028
  Receipt Date: 20221028
  Transmission Date: 20230113
  Serious: No
  Sender: FDA-Public Use
  Company Number: US-ABBVIE-4174741

PATIENT
  Sex: Female

DRUGS (2)
  1. IMBRUVICA [Suspect]
     Active Substance: IBRUTINIB
     Indication: Chronic lymphocytic leukaemia
     Dosage: STOP DATE-2022
     Route: 048
     Dates: start: 20220825
  2. IMBRUVICA [Suspect]
     Active Substance: IBRUTINIB
     Indication: Chronic lymphocytic leukaemia
     Dosage: START DATE- 2022
     Route: 048

REACTIONS (2)
  - Gastrointestinal motility disorder [Recovering/Resolving]
  - Gastrointestinal motility disorder [Recovering/Resolving]

NARRATIVE: CASE EVENT DATE: 20220101
